FAERS Safety Report 5511281-5 (Version None)
Quarter: 2007Q4

REPORT INFORMATION
  Report Type: 
  Country: None (occurrence: None)
  Receive Date: 20071109
  Receipt Date: 20070829
  Transmission Date: 20080405
  Serious: No
  Sender: FDA-Public Use
  Company Number: A0659718A

PATIENT
  Age: 67 Year
  Sex: Male

DRUGS (3)
  1. ALTABAX [Suspect]
     Indication: WOUND
     Route: 061
     Dates: start: 20070604, end: 20070609
  2. HYDROGEN PEROXIDE SOLUTION [Suspect]
     Route: 061
     Dates: start: 20070604, end: 20070610
  3. BANDAGE [Concomitant]
     Indication: WOUND
     Route: 061
     Dates: start: 20070604, end: 20070610

REACTIONS (4)
  - APPLICATION SITE ECZEMA [None]
  - APPLICATION SITE ERYTHEMA [None]
  - APPLICATION SITE EXFOLIATION [None]
  - APPLICATION SITE IRRITATION [None]
